FAERS Safety Report 13502535 (Version 1)
Quarter: 2017Q2

REPORT INFORMATION
  Report Type: Spontaneous
  Country: US (occurrence: US)
  Receive Date: 20170501
  Receipt Date: 20170501
  Transmission Date: 20170830
  Serious: No
  Sender: FDA-Public Use
  Company Number: None

PATIENT
  Age: 59 Year
  Sex: Female
  Weight: 104.4 kg

DRUGS (7)
  1. TRAMADOL. [Concomitant]
     Active Substance: TRAMADOL
  2. FIORICET [Concomitant]
     Active Substance: ACETAMINOPHEN\BUTALBITAL\CAFFEINE
  3. PHENERGAN [Concomitant]
     Active Substance: PROMETHAZINE HYDROCHLORIDE
  4. SOMA [Concomitant]
     Active Substance: CARISOPRODOL
  5. BUPROPN [Concomitant]
  6. IBUPROFEN 800MG [Suspect]
     Active Substance: IBUPROFEN
     Indication: ARTHRITIS
     Dosage: ?          QUANTITY:60 TABLET(S);?
     Route: 048
  7. MOTRIN [Concomitant]
     Active Substance: IBUPROFEN

REACTIONS (3)
  - Product substitution issue [None]
  - Arthritis [None]
  - Mobility decreased [None]

NARRATIVE: CASE EVENT DATE: 20170308
